FAERS Safety Report 16814213 (Version 3)
Quarter: 2019Q4

REPORT INFORMATION
  Report Type: Spontaneous
  Country: JP (occurrence: JP)
  Receive Date: 20190917
  Receipt Date: 20191113
  Transmission Date: 20200122
  Serious: Yes (Other)
  Sender: FDA-Public Use
  Company Number: JP-PFIZER INC-2019316906

PATIENT
  Age: 52 Year
  Sex: Female
  Weight: 82 kg

DRUGS (24)
  1. IBRANCE [Suspect]
     Active Substance: PALBOCICLIB
     Dosage: 100 MG, 1X/DAY (5TH WEEK OF CYCLE 2)
     Dates: start: 20180807, end: 20180813
  2. RANMARK [Concomitant]
     Active Substance: DENOSUMAB
     Dosage: 1 DF, UNK
     Dates: start: 20180618
  3. IBRANCE [Suspect]
     Active Substance: PALBOCICLIB
     Dosage: 125 MG, 1X/DAY (CYCLE 4)
     Dates: start: 20180918, end: 20181008
  4. IBRANCE [Suspect]
     Active Substance: PALBOCICLIB
     Dosage: 75 MG, 1X/DAY (CYCLE 11)
     Dates: start: 20190730, end: 20190812
  5. IBRANCE [Suspect]
     Active Substance: PALBOCICLIB
     Dosage: 75 MG, 1X/DAY (CYCLE 12)
     Dates: start: 20190820
  6. TALION [Concomitant]
     Indication: URTICARIA
     Dosage: 1 DF, UNK (1 TABLET ONCE OR TWICE DAILY)
     Dates: start: 20180703
  7. FAMOTIDINE. [Concomitant]
     Active Substance: FAMOTIDINE
     Indication: NAUSEA
     Dosage: 1 DF, UNK (1 TABLET ONCE OR TWICE DAILY)
     Dates: start: 20180329
  8. FUROSEMIDE. [Concomitant]
     Active Substance: FUROSEMIDE
     Indication: OEDEMA
     Dosage: 1 DF, 1X/DAY
     Dates: start: 20181227, end: 20190629
  9. MIYA-BM [Concomitant]
     Active Substance: CLOSTRIDIUM BUTYRICUM SPORES STRAIN M-55
     Indication: CONSTIPATION
     Dosage: 1 DF, 3X/DAY
  10. IBRANCE [Suspect]
     Active Substance: PALBOCICLIB
     Dosage: 75 MG, 1X/DAY (CYCLE 8)
     Dates: start: 20190129, end: 20190218
  11. FASLODEX [Concomitant]
     Active Substance: FULVESTRANT
     Dosage: 2 DF, UNK
     Dates: start: 20180618
  12. IBRANCE [Suspect]
     Active Substance: PALBOCICLIB
     Dosage: 100 MG, 1X/DAY (CYCLE 7)
     Dates: start: 20190101, end: 20190107
  13. IBRANCE [Suspect]
     Active Substance: PALBOCICLIB
     Dosage: 75 MG, 1X/DAY 92ND WEEK OF CYCLE 7)
     Dates: start: 20190108, end: 20190121
  14. IBRANCE [Suspect]
     Active Substance: PALBOCICLIB
     Dosage: 75 MG, 1X/DAY (CYCLE 9)
     Dates: start: 20190618, end: 20190701
  15. MAGMITT [Concomitant]
     Active Substance: MAGNESIUM OXIDE
     Indication: CONSTIPATION
     Dosage: UNK, 3X/DAY (1 TO 2 TABLETS THREE TIMES DAILY)
  16. IBRANCE [Suspect]
     Active Substance: PALBOCICLIB
     Dosage: 125 MG, 1X/DAY (CYCLE 5)
     Dates: start: 20181016, end: 20181029
  17. IBRANCE [Suspect]
     Active Substance: PALBOCICLIB
     Dosage: 100 MG, 1X/DAY (5TH WEEK OF CYCLE 5)
     Dates: start: 20181113, end: 20181119
  18. METHYCOBAL [Concomitant]
     Active Substance: METHYLCOBALAMIN
     Indication: HYPOAESTHESIA
     Dosage: 1 DF, 3X/DAY (1 TABLET, 3 TIMES DAILY)
     Dates: start: 2003
  19. TALION [Concomitant]
     Dosage: 10,UNK, 2X/DAY
     Dates: start: 20180703
  20. IBRANCE [Suspect]
     Active Substance: PALBOCICLIB
     Dosage: 125 MG, 1X/DAY (CYCLE 1)
     Route: 048
     Dates: start: 20180605, end: 20180625
  21. IBRANCE [Suspect]
     Active Substance: PALBOCICLIB
     Dosage: 125 MG, 1X/DAY (CYCLE 2)
     Route: 048
     Dates: start: 20180710, end: 20180723
  22. IBRANCE [Suspect]
     Active Substance: PALBOCICLIB
     Dosage: 125 MG, 1X/DAY (CYCLE 3)
     Dates: start: 20180821, end: 20180910
  23. IBRANCE [Suspect]
     Active Substance: PALBOCICLIB
     Dosage: 100 MG, 1X/DAY (CYCLE 6)
     Dates: start: 20181127, end: 20181224
  24. IBRANCE [Suspect]
     Active Substance: PALBOCICLIB
     Dosage: 75 MG, 1X/DAY (CYCLE 10)
     Dates: start: 20190709, end: 20190722

REACTIONS (11)
  - Pruritus [Recovering/Resolving]
  - Weight increased [Recovering/Resolving]
  - Constipation [Not Recovered/Not Resolved]
  - Visual acuity reduced [Not Recovered/Not Resolved]
  - Dysgeusia [Recovered/Resolved]
  - Epistaxis [Recovered/Resolved]
  - Oedema [Not Recovered/Not Resolved]
  - Skin exfoliation [Recovered/Resolved]
  - Liver function test increased [Recovering/Resolving]
  - Paraesthesia oral [Unknown]
  - Hepatic steatosis [Not Recovered/Not Resolved]

NARRATIVE: CASE EVENT DATE: 20180608
